FAERS Safety Report 9886935 (Version 1)
Quarter: 2014Q1

REPORT INFORMATION
  Report Type: Not Available
  Country: US (occurrence: US)
  Receive Date: 20140211
  Receipt Date: 20140211
  Transmission Date: 20141002
  Serious: Yes (Other)
  Sender: FDA-Public Use
  Company Number: US-LUPIN PHARMACEUTICALS INC.-E2B_00001675

PATIENT
  Age: 14 Year
  Sex: Male
  Weight: 74.91 kg

DRUGS (1)
  1. SERTRALINE HYDROCHLORIDE TABLETS 100 MG [Suspect]
     Indication: DEPRESSION
     Dates: start: 201206, end: 20131223

REACTIONS (1)
  - Vanishing bile duct syndrome [Recovering/Resolving]
